FAERS Safety Report 5284034-3 (Version None)
Quarter: 2007Q2

REPORT INFORMATION
  Report Type: 
  Country: None (occurrence: None)
  Receive Date: 20070402
  Receipt Date: 20070322
  Transmission Date: 20071010
  Serious: Yes (Other)
  Sender: FDA-Public Use
  Company Number: GB-PFIZER INC-2007023513

PATIENT
  Sex: Male

DRUGS (2)
  1. IRINOTECAN HCL [Suspect]
     Indication: COLORECTAL CANCER METASTATIC
  2. AVASTIN [Suspect]
     Indication: COLORECTAL CANCER METASTATIC

REACTIONS (1)
  - HYPERTENSION [None]
